FAERS Safety Report 12785381 (Version 1)
Quarter: 2016Q3

REPORT INFORMATION
  Report Type: Spontaneous
  Country: GB (occurrence: GB)
  Receive Date: 20160927
  Receipt Date: 20160927
  Transmission Date: 20161109
  Serious: Yes (Disabling)
  Sender: FDA-Public Use
  Company Number: GB-MYLANLABS-2016M1040475

PATIENT

DRUGS (7)
  1. ERYTHROMYCIN. [Concomitant]
     Active Substance: ERYTHROMYCIN
     Dosage: 1 DF, QID
     Dates: start: 20160906
  2. EUMOVATE [Concomitant]
     Active Substance: CLOBETASONE BUTYRATE
     Dosage: UNK (APPLY 1-2 TIMES/DAY)
     Dates: start: 20160620, end: 20160718
  3. ZEROBASE                           /00103901/ [Concomitant]
     Dosage: UNK (USE AS DIRECTED)
     Dates: start: 20160620, end: 20160627
  4. COCODAMOL [Concomitant]
     Active Substance: ACETAMINOPHEN\CODEINE PHOSPHATE
     Dosage: UNK (TAKE 1 OR 2 4 TIMES/DAY)
     Dates: start: 20160903, end: 20160904
  5. OTOMIZE [Concomitant]
     Active Substance: DEXAMETHASONE\NEOMYCIN SULFATE
     Dosage: UNK (USE AS DIRECTED)
     Dates: start: 20160622, end: 20160629
  6. DOXYCYCLINE. [Suspect]
     Active Substance: DOXYCYCLINE
     Dosage: UNK
     Dates: start: 20160903
  7. FLUCONAZOLE. [Concomitant]
     Active Substance: FLUCONAZOLE
     Dosage: 1 DF, QD
     Dates: start: 20160906, end: 20160907

REACTIONS (4)
  - Anal candidiasis [Not Recovered/Not Resolved]
  - Nausea [Recovering/Resolving]
  - Malaise [Recovering/Resolving]
  - Vision blurred [Recovered/Resolved]

NARRATIVE: CASE EVENT DATE: 20160903
